FAERS Safety Report 8393462-9 (Version None)
Quarter: 2012Q2

REPORT INFORMATION
  Report Type: 
  Country: None (occurrence: None)
  Receive Date: 20120529
  Receipt Date: 20120524
  Transmission Date: 20120825
  Serious: Yes (Other)
  Sender: FDA-Public Use
  Company Number: US-FRI-1000030783

PATIENT
  Age: 49 Year
  Sex: Female

DRUGS (2)
  1. LEXAPRO [Suspect]
     Indication: DEPRESSION
     Dosage: 20 MG
     Dates: start: 20020101, end: 20120401
  2. LEXAPRO [Suspect]
     Indication: ANXIETY

REACTIONS (3)
  - NAUSEA [None]
  - VOMITING [None]
  - GASTROINTESTINAL INFLAMMATION [None]
